FAERS Safety Report 23431785 (Version 1)
Quarter: 2024Q1

REPORT INFORMATION
  Report Type: Spontaneous
  Country: DE (occurrence: DE)
  Receive Date: 20240123
  Receipt Date: 20240123
  Transmission Date: 20240410
  Serious: Yes (Other)
  Sender: FDA-Public Use
  Company Number: DE-SUN PHARMACEUTICAL INDUSTRIES LTD-2024RR-428216

PATIENT
  Age: 75 Year
  Sex: Male
  Weight: 76 kg

DRUGS (1)
  1. CIPROFLOXACIN [Suspect]
     Active Substance: CIPROFLOXACIN
     Indication: Diverticulitis
     Dosage: 500 MILLIGRAM, BID, 1-0-1
     Route: 048
     Dates: start: 20230918, end: 20230923

REACTIONS (9)
  - Balance disorder [Recovering/Resolving]
  - Somnolence [Recovering/Resolving]
  - Auditory disorder [Recovering/Resolving]
  - Depression [Recovering/Resolving]
  - Fatigue [Recovering/Resolving]
  - Somnolence [Recovering/Resolving]
  - Tinnitus [Recovering/Resolving]
  - Nausea [Recovering/Resolving]
  - Dizziness [Recovering/Resolving]

NARRATIVE: CASE EVENT DATE: 20230922
